FAERS Safety Report 10687369 (Version 3)
Quarter: 2015Q1

REPORT INFORMATION
  Report Type: Spontaneous
  Country: IT (occurrence: IT)
  Receive Date: 20150102
  Receipt Date: 20150106
  Transmission Date: 20150720
  Serious: Yes (Hospitalization)
  Sender: FDA-Public Use
  Company Number: PHHY2014IT159382

PATIENT
  Age: 4 Year
  Sex: Male

DRUGS (3)
  1. EXJADE [Suspect]
     Active Substance: DEFERASIROX
     Indication: THALASSAEMIA BETA
     Dosage: 16 MG/KG, QD
     Route: 048
     Dates: start: 20121111, end: 20140715
  2. FOLINA [Concomitant]
     Active Substance: FOLIC ACID
     Indication: ANAEMIA MEGALOBLASTIC
     Dosage: 5 MG, UNK
     Route: 048
     Dates: start: 20110205, end: 20141209
  3. AMOXINA [Concomitant]
     Active Substance: AMOXICILLIN
     Indication: ANTIBIOTIC PROPHYLAXIS
     Dosage: 280 MG
     Route: 048

REACTIONS (2)
  - Hyperhidrosis [Recovered/Resolved]
  - Pyrexia [Recovered/Resolved]

NARRATIVE: CASE EVENT DATE: 20131015
